FAERS Safety Report 6422476-0 (Version None)
Quarter: 2009Q4

REPORT INFORMATION
  Report Type: 
  Country: None (occurrence: None)
  Receive Date: 20091030
  Receipt Date: 20091023
  Transmission Date: 20100525
  Serious: Yes (Other)
  Sender: FDA-Public Use
  Company Number: ZA-B.I. PHARMACEUTICALS,INC./RIDGEFIELD-2009-BP-12318BP

PATIENT
  Age: 37 Year
  Sex: Female

DRUGS (4)
  1. VIRAMUNE [Suspect]
     Indication: HIV INFECTION
     Dosage: 400 MG
     Route: 048
     Dates: start: 20070404, end: 20090729
  2. TRUVADA [Suspect]
     Indication: HIV INFECTION
     Dosage: 1
     Route: 048
     Dates: start: 20070404, end: 20090729
  3. EPIVIR [Suspect]
     Indication: HIV INFECTION
     Dosage: 300 MG
     Route: 048
     Dates: start: 20090818
  4. RETROVIR [Suspect]
     Indication: HIV INFECTION
     Dosage: 600 MG
     Route: 048
     Dates: start: 20090818

REACTIONS (1)
  - ABORTION SPONTANEOUS [None]
